FAERS Safety Report 11287081 (Version 1)
Quarter: 2015Q3

REPORT INFORMATION
  Report Type: Spontaneous
  Country: US (occurrence: US)
  Receive Date: 20150721
  Receipt Date: 20150721
  Transmission Date: 20151125
  Serious: No
  Sender: FDA-Public Use
  Company Number: US-UNITED THERAPEUTICS-UNT-2014-012629

PATIENT
  Sex: Female
  Weight: 87.98 kg

DRUGS (2)
  1. ORENITRAM [Suspect]
     Active Substance: TREPROSTINIL
     Indication: PULMONARY ARTERIAL HYPERTENSION
     Dosage: 3.75 MG, TID
     Route: 048
     Dates: start: 20140611
  2. LETAIRIS [Concomitant]
     Active Substance: AMBRISENTAN
     Indication: PRODUCT USED FOR UNKNOWN INDICATION

REACTIONS (4)
  - Nasal congestion [Unknown]
  - Nasopharyngitis [Unknown]
  - Cough [Unknown]
  - Secretion discharge [Unknown]

NARRATIVE: CASE EVENT DATE: 2014
